FAERS Safety Report 22047999 (Version 1)
Quarter: 2023Q1

REPORT INFORMATION
  Report Type: Spontaneous
  Country: US (occurrence: US)
  Receive Date: 20230301
  Receipt Date: 20230301
  Transmission Date: 20230417
  Serious: Yes (Hospitalization, Other)
  Sender: FDA-Public Use
  Company Number: US-MLMSERVICE-20230210-4097941-1

PATIENT

DRUGS (1)
  1. ALBUTEROL\IPRATROPIUM [Suspect]
     Active Substance: ALBUTEROL\IPRATROPIUM
     Indication: Asthma
     Dosage: UNK

REACTIONS (5)
  - Hyperglycaemia [Recovered/Resolved]
  - Hypophosphataemia [Recovered/Resolved]
  - Toxicity to various agents [Recovered/Resolved]
  - Lactic acidosis [Recovered/Resolved]
  - Hypokalaemia [Recovered/Resolved]
